FAERS Safety Report 4355016-0 (Version None)
Quarter: 2004Q2

REPORT INFORMATION
  Report Type: 
  Country: None (occurrence: None)
  Receive Date: 20040504
  Receipt Date: 20040423
  Transmission Date: 20050107
  Serious: Yes (Hospitalization, Other)
  Sender: FDA-Public Use
  Company Number: US-SHR-04-022761

PATIENT
  Age: 65 Year
  Sex: Female

DRUGS (3)
  1. BETASERON [Suspect]
     Indication: MULTIPLE SCLEROSIS
     Dosage: 8 MIU, EVERY 2D, SUBCUTANEOUS
     Route: 058
     Dates: start: 19930909
  2. NEURONTIN [Concomitant]
  3. KLONOPIN [Concomitant]

REACTIONS (3)
  - BLOOD PRESSURE DECREASED [None]
  - INJECTION SITE INFECTION [None]
  - PYREXIA [None]
